FAERS Safety Report 9432457 (Version 1)
Quarter: 2013Q3

REPORT INFORMATION
  Report Type: Spontaneous
  Country: US (occurrence: None)
  Receive Date: 20130730
  Receipt Date: 20130730
  Transmission Date: 20140515
  Serious: Yes (Other)
  Sender: FDA-Public Use
  Company Number: None

PATIENT
  Age: 64 None
  Sex: Female
  Weight: 61.24 kg

DRUGS (2)
  1. ZOLEDRONIC ACID [Suspect]
     Indication: BONE DISORDER
     Dosage: 5MG/100ML, YEARLY, IV
     Route: 042
     Dates: start: 20130613
  2. ZOLEDRONIC ACID [Suspect]
     Indication: CHONDROPATHY
     Dosage: 5MG/100ML, YEARLY, IV
     Route: 042
     Dates: start: 20130613

REACTIONS (4)
  - Chills [None]
  - Fatigue [None]
  - Myalgia [None]
  - Bone pain [None]
